FAERS Safety Report 9116848 (Version 1)
Quarter: 2013Q1

REPORT INFORMATION
  Report Type: Spontaneous
  Country: VE (occurrence: VE)
  Receive Date: 20130225
  Receipt Date: 20130225
  Transmission Date: 20140127
  Serious: Yes (Other)
  Sender: FDA-Public Use
  Company Number: PHHY2011VE79149

PATIENT
  Age: 69 Year
  Sex: Female

DRUGS (9)
  1. ACLASTA [Suspect]
     Indication: OSTEOPOROSIS
     Dosage: 5 MG, UNK
     Route: 042
     Dates: start: 20110730
  2. LYRICA [Concomitant]
     Indication: PAIN
     Dosage: UNK UKN, QD
  3. LYRICA [Concomitant]
     Dosage: 75 MG, DAILY
     Route: 048
     Dates: start: 2009
  4. CALCIUM [Concomitant]
     Indication: OSTEOPENIA
     Dosage: UNK UKN, QD
  5. CALCIUM [Concomitant]
     Dosage: 1250 MG, UNK
     Route: 048
  6. ATAMEL [Concomitant]
     Dosage: UNK UKN, QD
  7. ROCALTROL [Concomitant]
     Indication: PATHOLOGICAL FRACTURE
     Dosage: 0.25 UG, DAILY
     Route: 048
  8. KETOPROFEN [Concomitant]
     Indication: PAIN
     Dosage: 100 MG, DAILY
     Route: 048
  9. IDEOS [Concomitant]
     Indication: OSTEOPENIA
     Dosage: 1250 MG, UNK
     Route: 048

REACTIONS (3)
  - Fall [Recovered/Resolved]
  - Headache [Recovered/Resolved]
  - Pyrexia [Recovered/Resolved]
